FAERS Safety Report 9095979 (Version 1)
Quarter: 2013Q1

REPORT INFORMATION
  Report Type: Spontaneous
  Country: AU (occurrence: AU)
  Receive Date: 20130207
  Receipt Date: 20130207
  Transmission Date: 20140127
  Serious: Yes (Hospitalization, Other)
  Sender: FDA-Public Use
  Company Number: AU-PERRIGO-13AU001108

PATIENT
  Age: 39 Year
  Sex: Female

DRUGS (2)
  1. LORAZEPAM [Suspect]
     Indication: PSYCHOTIC DISORDER
     Dosage: 2 MG, QD
     Route: 048
  2. RISPERIDONE [Suspect]
     Indication: SCHIZOPHRENIA
     Dosage: UNK,UNK
     Route: 058

REACTIONS (10)
  - Drug withdrawal syndrome [Recovering/Resolving]
  - Acute psychosis [Recovering/Resolving]
  - Catatonia [Recovered/Resolved]
  - Agitation [Recovered/Resolved]
  - Mutism [Recovered/Resolved]
  - Posturing [Recovered/Resolved]
  - Staring [Recovered/Resolved]
  - Negativism [Recovered/Resolved]
  - Echolalia [Recovered/Resolved]
  - Off label use [Unknown]
